FAERS Safety Report 9694849 (Version 1)
Quarter: 2013Q4

REPORT INFORMATION
  Report Type: Spontaneous
  Country: US (occurrence: US)
  Receive Date: 20131119
  Receipt Date: 20131119
  Transmission Date: 20140711
  Serious: Yes (Other)
  Sender: FDA-Public Use
  Company Number: US-AMGEN-USASP2013080932

PATIENT
  Age: 67 Year
  Sex: Female

DRUGS (2)
  1. ENBREL [Suspect]
     Indication: RHEUMATOID ARTHRITIS
     Dosage: 50 MG, QWK
     Route: 065
     Dates: end: 201301
  2. CHEMOTHERAPEUTICS [Suspect]
     Dosage: UNK

REACTIONS (6)
  - Lung neoplasm malignant [Not Recovered/Not Resolved]
  - Metastatic lymphoma [Not Recovered/Not Resolved]
  - Metastases to spine [Not Recovered/Not Resolved]
  - Blood count abnormal [Not Recovered/Not Resolved]
  - Musculoskeletal pain [Not Recovered/Not Resolved]
  - Memory impairment [Not Recovered/Not Resolved]
